FAERS Safety Report 4391257-4 (Version None)
Quarter: 2004Q2

REPORT INFORMATION
  Report Type: 
  Country: None (occurrence: None)
  Receive Date: 20040621
  Receipt Date: 20031114
  Transmission Date: 20050107
  Serious: Yes (Other)
  Sender: FDA-Public Use
  Company Number: USA-2002-0001017

PATIENT
  Age: 47 Year
  Sex: Male
  Weight: 70.3 kg

DRUGS (7)
  1. OXYCONTIN [Suspect]
     Indication: PAIN
     Dosage: 20 MG
     Dates: start: 20000320, end: 20020103
  2. EFEXOR ER [Concomitant]
  3. CLONAZEPAM [Concomitant]
  4. LOTREL [Concomitant]
  5. ULTRAM [Concomitant]
  6. ZANAFLEX [Concomitant]
  7. VISTARIL FOR INJECTION [Concomitant]

REACTIONS (18)
  - ANXIETY [None]
  - ASTHENIA [None]
  - BACK PAIN [None]
  - CHEST PAIN [None]
  - CONTUSION [None]
  - DEPRESSION [None]
  - DIZZINESS [None]
  - DRUG DEPENDENCE [None]
  - DRUG WITHDRAWAL SYNDROME [None]
  - DYSPNOEA [None]
  - HEADACHE [None]
  - LOSS OF CONSCIOUSNESS [None]
  - MEMORY IMPAIRMENT [None]
  - NECK PAIN [None]
  - PAIN [None]
  - PAIN IN EXTREMITY [None]
  - ROAD TRAFFIC ACCIDENT [None]
  - VISION BLURRED [None]
